FAERS Safety Report 4538334-2 (Version None)
Quarter: 2004Q4

REPORT INFORMATION
  Report Type: 
  Country: None (occurrence: None)
  Receive Date: 20041221
  Receipt Date: 20041213
  Transmission Date: 20050328
  Serious: No
  Sender: FDA-Public Use
  Company Number: 2004AC01024

PATIENT
  Weight: 1.75 kg

DRUGS (6)
  1. LIDOCAINE [Suspect]
     Indication: CONVULSION
     Dosage: 2 MG/KG ONCE IV
     Route: 042
  2. LIDOCAINE [Suspect]
     Indication: CONVULSION
     Dosage: 6 MG/KG/IV
     Route: 042
  3. LIDOCAINE [Suspect]
     Indication: CONVULSION
     Dosage: DOSE TAILING OFF
  4. LIDOCAINE [Suspect]
     Indication: CONVULSION
     Dosage: LIDOCAINE WAS STOPPED FOR 5.5 HRS AND THEN RESTARTED
  5. PHENOBARBITAL TAB [Concomitant]
  6. CLONAZEPAM [Concomitant]

REACTIONS (6)
  - ARRHYTHMIA NEONATAL [None]
  - CONVULSION NEONATAL [None]
  - DRUG INEFFECTIVE [None]
  - ELECTROCARDIOGRAM PQ INTERVAL PROLONGED [None]
  - ELECTROENCEPHALOGRAM ABNORMAL [None]
  - NEONATAL DISORDER [None]
